FAERS Safety Report 7814609-6 (Version None)
Quarter: 2011Q4

REPORT INFORMATION
  Report Type: 
  Country: None (occurrence: None)
  Receive Date: 20111013
  Receipt Date: 20111013
  Transmission Date: 20120403
  Serious: Yes (Other)
  Sender: FDA-Public Use
  Company Number: None

PATIENT
  Age: 24 Year
  Sex: Female
  Weight: 66.2252 kg

DRUGS (2)
  1. NORETHINDRONE [Concomitant]
  2. VENLAFAXINE [Suspect]
     Indication: MIGRAINE PROPHYLAXIS
     Dosage: 75 MG BID PO
     Route: 048
     Dates: start: 20100915, end: 20100928

REACTIONS (5)
  - DIZZINESS [None]
  - PRODUCT SUBSTITUTION ISSUE [None]
  - NAUSEA [None]
  - MOOD SWINGS [None]
  - MIGRAINE [None]
